FAERS Safety Report 10223003 (Version 2)
Quarter: 2014Q2

REPORT INFORMATION
  Report Type: Spontaneous
  Country: FR (occurrence: FR)
  Receive Date: 20140607
  Receipt Date: 20140624
  Transmission Date: 20141212
  Serious: Yes (Other)
  Sender: FDA-Public Use
  Company Number: PHHY2014FR069202

PATIENT
  Age: 19 Year
  Sex: Male

DRUGS (3)
  1. GILENYA [Suspect]
     Indication: RELAPSING-REMITTING MULTIPLE SCLEROSIS
     Dosage: 1 DF, QD
     Route: 048
     Dates: start: 201310, end: 20140524
  2. GILENYA [Suspect]
     Dosage: 22 DF, UNK
     Route: 048
     Dates: start: 20140524, end: 20140524
  3. GILENYA [Suspect]
     Dosage: 1 DF, QD
     Route: 048
     Dates: start: 201406

REACTIONS (2)
  - Suicide attempt [Recovered/Resolved]
  - Intentional overdose [Recovered/Resolved]
